FAERS Safety Report 5901650-3 (Version None)
Quarter: 2008Q3

REPORT INFORMATION
  Report Type: 
  Country: None (occurrence: None)
  Receive Date: 20080926
  Receipt Date: 20080926
  Transmission Date: 20090109
  Serious: Yes (Hospitalization)
  Sender: FDA-Public Use
  Company Number: None

PATIENT
  Sex: Male
  Weight: 77 kg

DRUGS (1)
  1. DAPSONE [Suspect]
     Dosage: 100MG DAILY PO
     Route: 048

REACTIONS (5)
  - DERMATITIS EXFOLIATIVE [None]
  - FOLLICULITIS [None]
  - STAPHYLOCOCCAL SKIN INFECTION [None]
  - STEVENS-JOHNSON SYNDROME [None]
  - SUBCUTANEOUS ABSCESS [None]
